FAERS Safety Report 18122036 (Version 1)
Quarter: 2020Q3

REPORT INFORMATION
  Report Type: Spontaneous
  Country: US (occurrence: US)
  Receive Date: 20200807
  Receipt Date: 20200807
  Transmission Date: 20201103
  Serious: Yes (Death, Life-Threatening, Other)
  Sender: FDA-Public Use
  Company Number: US-HIKMA PHARMACEUTICALS USA INC.-US-H14001-20-03642

PATIENT
  Age: 53 Year
  Sex: Male

DRUGS (5)
  1. TEMOZOLOMIDE. [Concomitant]
     Active Substance: TEMOZOLOMIDE
     Indication: CHEMOTHERAPY
     Dosage: UNKNOWN
     Route: 065
  2. DOXORUBICIN [Concomitant]
     Active Substance: DOXORUBICIN
     Indication: CHEMOTHERAPY
     Dosage: UNKNOWN
     Route: 065
  3. OLARATUMAB [Concomitant]
     Active Substance: OLARATUMAB
     Indication: CHEMOTHERAPY
     Dosage: UNKNOWN
     Route: 065
  4. BEVACIZUMAB. [Concomitant]
     Active Substance: BEVACIZUMAB
     Indication: CHEMOTHERAPY
     Dosage: UNKNOWN
     Route: 065
  5. PREDNISONE. [Suspect]
     Active Substance: PREDNISONE
     Indication: PRIMARY ADRENAL INSUFFICIENCY
     Route: 048

REACTIONS (2)
  - Adrenocortical insufficiency acute [Fatal]
  - Product dose omission issue [Fatal]
